FAERS Safety Report 22704504 (Version 7)
Quarter: 2024Q1

REPORT INFORMATION
  Report Type: Spontaneous
  Country: PK (occurrence: PK)
  Receive Date: 20230714
  Receipt Date: 20240327
  Transmission Date: 20240410
  Serious: Yes (Other)
  Sender: FDA-Public Use
  Company Number: PK-PFIZER INC-PV202300118546

PATIENT
  Age: 32 Year
  Sex: Female

DRUGS (15)
  1. ENBREL [Suspect]
     Active Substance: ETANERCEPT
     Indication: Arthritis
     Dosage: 50 MILLIGRAM, QWK (50 MG, WEEKLY)
     Route: 058
     Dates: start: 20230605
  2. ENBREL [Suspect]
     Active Substance: ETANERCEPT
     Dosage: UNK
     Route: 065
  3. DELTACORTRIL [Suspect]
     Active Substance: PREDNISOLONE
     Indication: Product used for unknown indication
     Dosage: 7.5 MILLIGRAM, QD (7.5 MG, DAILY)
     Route: 065
  4. DELTACORTRIL [Suspect]
     Active Substance: PREDNISOLONE
     Dosage: 1.5 DOSAGE FORM (1.5 TABLET IN MORNING AFTER MEAL)
     Route: 065
  5. Motival [Concomitant]
     Dosage: 1 DOSAGE FORM, QD (1 TAB AT NIGHT AFTER MEAL)
     Route: 065
  6. QALSAN D [Concomitant]
     Dosage: 1 DOSAGE FORM, QD (1 TAB IN EVENING AFTER MEAL)
  7. FOLIC ACID [Concomitant]
     Active Substance: FOLIC ACID
     Dosage: 1 DOSAGE FORM (1 TAB IN MORNING AFTER MEAL)
  8. DICLOFENAC DIETHYLAMINE [Concomitant]
     Active Substance: DICLOFENAC DIETHYLAMINE
     Dosage: UNK (APPLY LOCALLY, THREE TIMES A DAY WHEN REQUIRED)
     Route: 065
  9. TONOFLEX P [Concomitant]
     Indication: Pain
     Dosage: 1 DOSAGE FORM, TID (1+1+1+0, AFTER MEAL)
     Route: 065
  10. Risek [Concomitant]
     Dosage: 1 DOSAGE FORM, QD (1 CAP ONCE A DAY BEFORE MEAL FOR 4 WEEKS)
     Route: 065
  11. Sunny d [Concomitant]
     Dosage: 1 DOSAGE FORM, CYCLICAL (1 CAPSULE EVERY TWO WEEKS, AFTER MEAL, FOR 3 MONTHS)
     Route: 065
  12. VOLTAROL [Concomitant]
     Active Substance: DICLOFENAC SODIUM
     Dosage: 1 DOSAGE FORM, BID (1+0+1+0 IN MORNING AND EVENING FOR 4 WEEKS)
     Route: 065
  13. Zeegap [Concomitant]
     Dosage: 1 DOSAGE FORM, QD (1 TABLET AT NIGHT)
     Route: 065
  14. PANADOL [Concomitant]
     Active Substance: ACETAMINOPHEN
     Dosage: UNK (1+0+1+0, 1+1 IN MORNING AND EVENING FOR 4 WEEKS)
  15. ESSO [Concomitant]
     Dosage: 1 DOSAGE FORM, QD (1X TABLETS, ONCE A DAY, BEFORE MEAL)

REACTIONS (17)
  - Steroid dependence [Unknown]
  - Synovitis [Unknown]
  - Mouth ulceration [Unknown]
  - Fibromyalgia [Unknown]
  - Alopecia [Unknown]
  - Red blood cell sedimentation rate increased [Unknown]
  - Mean cell volume decreased [Unknown]
  - Blood creatine decreased [Unknown]
  - Haemoglobin decreased [Unknown]
  - Arthralgia [Unknown]
  - Dry eye [Unknown]
  - Back pain [Unknown]
  - Rash [Unknown]
  - Platelet count increased [Unknown]
  - Musculoskeletal stiffness [Unknown]
  - White blood cells urine positive [Unknown]
  - Pain [Unknown]
